FAERS Safety Report 18447609 (Version 1)
Quarter: 2020Q4

REPORT INFORMATION
  Report Type: Report from Study
  Country: EG (occurrence: EG)
  Receive Date: 20201101
  Receipt Date: 20201101
  Transmission Date: 20210114
  Serious: Yes (Other)
  Sender: FDA-Public Use
  Company Number: NVSC2020EG288830

PATIENT
  Sex: Female
  Weight: 15 kg

DRUGS (2)
  1. ZINC. [Concomitant]
     Active Substance: ZINC
     Indication: PRODUCT USED FOR UNKNOWN INDICATION
     Dosage: 5 UNK, QD (5CM/DAY) (STARTED AND ENDED WITH OMNITROPE)
     Route: 065
     Dates: start: 20181217
  2. OMNITROPE [Suspect]
     Active Substance: SOMATROPIN
     Indication: GROWTH HORMONE DEFICIENCY
     Dosage: 0.6 MG, QD (STOP DATE: SINCE THE START OF CORONA PANDEMIC AS PER THE REPORTER)
     Route: 058
     Dates: start: 20181217

REACTIONS (1)
  - Nephrolithiasis [Not Recovered/Not Resolved]
